FAERS Safety Report 16595064 (Version 1)
Quarter: 2019Q3

REPORT INFORMATION
  Report Type: Spontaneous
  Country: CA (occurrence: CA)
  Receive Date: 20190718
  Receipt Date: 20190718
  Transmission Date: 20191004
  Serious: Yes (Other)
  Sender: FDA-Public Use
  Company Number: CA-ACTELION-A-NJ2018-179491

PATIENT
  Age: 88 Year
  Sex: Female

DRUGS (17)
  1. JANUVIA [Concomitant]
     Active Substance: SITAGLIPTIN PHOSPHATE
  2. FUROSEMIDE. [Concomitant]
     Active Substance: FUROSEMIDE
  3. OPSUMIT [Suspect]
     Active Substance: MACITENTAN
     Indication: PULMONARY ARTERIAL HYPERTENSION
     Dosage: 10 MG, QD
     Route: 048
     Dates: start: 20180713
  4. RISEDRONATE [Concomitant]
     Active Substance: RISEDRONATE SODIUM
  5. RAMIPRIL. [Concomitant]
     Active Substance: RAMIPRIL
  6. NOVOLIN [Concomitant]
     Active Substance: INSULIN HUMAN
  7. REVATIO [Concomitant]
     Active Substance: SILDENAFIL CITRATE
  8. INSULIN [Concomitant]
     Active Substance: INSULIN NOS
  9. ADVAIR HFA [Concomitant]
     Active Substance: FLUTICASONE PROPIONATE\SALMETEROL XINAFOATE
  10. GLICLAZIDE [Concomitant]
     Active Substance: GLICLAZIDE
  11. SPIRIVA [Concomitant]
     Active Substance: TIOTROPIUM BROMIDE MONOHYDRATE
  12. PSYLLIUM [Concomitant]
     Active Substance: PLANTAGO SEED
  13. AMLODIPINE [Concomitant]
     Active Substance: AMLODIPINE BESYLATE
  14. PAROXETINE. [Concomitant]
     Active Substance: PAROXETINE
  15. PANTOPRAZOLE [Concomitant]
     Active Substance: PANTOPRAZOLE
  16. GLUCONATE DE CALCIUM [Concomitant]
     Active Substance: CALCIUM GLUCONATE
  17. HCT 25 [Concomitant]
     Active Substance: HYDROCHLOROTHIAZIDE
     Dosage: 25 MG, QD

REACTIONS (4)
  - Postoperative wound infection [Recovering/Resolving]
  - Venous operation [Recovering/Resolving]
  - Ulcer [Not Recovered/Not Resolved]
  - Mole excision [Recovering/Resolving]

NARRATIVE: CASE EVENT DATE: 20180911
